FAERS Safety Report 10173337 (Version 1)
Quarter: 2014Q2

REPORT INFORMATION
  Report Type: Spontaneous
  Country: CN (occurrence: CN)
  Receive Date: 20140515
  Receipt Date: 20140515
  Transmission Date: 20141212
  Serious: Yes (Other)
  Sender: FDA-Public Use
  Company Number: CN-BAXTER-2014BAX023154

PATIENT
  Age: 16 Year
  Sex: Male
  Weight: 85 kg

DRUGS (4)
  1. 20% MANNITOL INJECTION [Suspect]
     Indication: LIGAMENT SPRAIN
     Route: 041
     Dates: start: 20130112, end: 20130112
  2. 20% MANNITOL INJECTION [Suspect]
     Indication: JOINT INJURY
  3. DXM [Concomitant]
     Indication: LIGAMENT SPRAIN
     Route: 041
     Dates: start: 20130112, end: 20130112
  4. DXM [Concomitant]
     Indication: JOINT INJURY

REACTIONS (5)
  - Pruritus [Recovering/Resolving]
  - Rash erythematous [Unknown]
  - Asthenia [Unknown]
  - Dizziness [Recovering/Resolving]
  - Nausea [Recovering/Resolving]
